FAERS Safety Report 25009149 (Version 7)
Quarter: 2025Q4

REPORT INFORMATION
  Report Type: Report from Study
  Country: CA (occurrence: None)
  Receive Date: 20250225
  Receipt Date: 20251228
  Transmission Date: 20260118
  Serious: Yes (Other)
  Sender: UCB
  Company Number: CA-UCBSA-2025006732

PATIENT
  Age: 23 Year

DRUGS (4)
  1. BIMEKIZUMAB [Suspect]
     Active Substance: BIMEKIZUMAB
     Indication: Psoriatic arthropathy
     Dosage: 160 MILLIGRAM, EV 4 WEEKS
  2. BIMEKIZUMAB [Suspect]
     Active Substance: BIMEKIZUMAB
     Dosage: 320 MILLIGRAM, EV 4 WEEKS
  3. BIMEKIZUMAB [Suspect]
     Active Substance: BIMEKIZUMAB
     Dosage: 320 MILLIGRAM, EV 8 WEEKS
  4. VITAMINS [Concomitant]
     Active Substance: VITAMINS
     Indication: Product used for unknown indication
     Dosage: UNK

REACTIONS (9)
  - Psoriatic arthropathy [Not Recovered/Not Resolved]
  - Ear infection [Not Recovered/Not Resolved]
  - Fungal infection [Unknown]
  - Stomatitis [Unknown]
  - Oral herpes [Unknown]
  - Malaise [Unknown]
  - Psoriasis [Unknown]
  - Off label use [Unknown]
  - Inappropriate schedule of product administration [Unknown]
